FAERS Safety Report 12681149 (Version 3)
Quarter: 2017Q1

REPORT INFORMATION
  Report Type: Report from Study
  Country: GB (occurrence: GB)
  Receive Date: 20160824
  Receipt Date: 20170124
  Transmission Date: 20170428
  Serious: Yes (Hospitalization, Other)
  Sender: FDA-Public Use
  Company Number: GB-ALEXION PHARMACEUTICALS INC-A201603648

PATIENT
  Sex: Male

DRUGS (6)
  1. SOLIRIS [Suspect]
     Active Substance: ECULIZUMAB
     Dosage: 1500 MG, Q2W
     Route: 042
     Dates: start: 20090908
  2. SOLIRIS [Suspect]
     Active Substance: ECULIZUMAB
     Dosage: 1500 MG, Q2W
     Route: 042
     Dates: start: 20090908
  3. SOLIRIS [Suspect]
     Active Substance: ECULIZUMAB
     Dosage: 1500 MG, Q2W
     Route: 042
     Dates: start: 20090908
  4. SOLIRIS [Suspect]
     Active Substance: ECULIZUMAB
     Dosage: 1500 MG, Q2W
     Route: 042
     Dates: start: 20090908
  5. SOLIRIS [Suspect]
     Active Substance: ECULIZUMAB
     Indication: PAROXYSMAL NOCTURNAL HAEMOGLOBINURIA
     Dosage: UNK
     Route: 042
  6. PENICILLIN                         /00000901/ [Concomitant]
     Active Substance: PENICILLIN G
     Indication: PROPHYLAXIS
     Route: 065

REACTIONS (7)
  - Peripheral swelling [Unknown]
  - Pain [Unknown]
  - Necrosis [Unknown]
  - Wound [Not Recovered/Not Resolved]
  - Cellulitis [Unknown]
  - Wound infection [Recovered/Resolved]
  - Skin ulcer [Not Recovered/Not Resolved]
